FAERS Safety Report 17052410 (Version 1)
Quarter: 2019Q4

REPORT INFORMATION
  Report Type: Spontaneous
  Country: US (occurrence: US)
  Receive Date: 20191120
  Receipt Date: 20191120
  Transmission Date: 20200122
  Serious: Yes (Other)
  Sender: FDA-Public Use
  Company Number: NVSC2019US041011

PATIENT
  Sex: Male

DRUGS (1)
  1. GLEEVEC [Suspect]
     Active Substance: IMATINIB MESYLATE
     Indication: SYSTEMIC SCLERODERMA
     Dosage: 100 MG, QD
     Route: 048

REACTIONS (3)
  - Diastolic dysfunction [Recovered/Resolved]
  - Dyspnoea [Not Recovered/Not Resolved]
  - Generalised oedema [Unknown]
